FAERS Safety Report 9694318 (Version 2)
Quarter: 2013Q4

REPORT INFORMATION
  Report Type: Spontaneous
  Country: US (occurrence: US)
  Receive Date: 20131118
  Receipt Date: 20131118
  Transmission Date: 20140711
  Serious: No
  Sender: FDA-Public Use
  Company Number: US-GILEAD-2007-0013311

PATIENT
  Age: 63 Year
  Sex: Male
  Weight: 136.8 kg

DRUGS (13)
  1. LETAIRIS [Suspect]
     Indication: PULMONARY ARTERIAL HYPERTENSION
     Route: 048
     Dates: start: 20070713
  2. LISINOPRIL/HCTZ [Concomitant]
     Indication: HYPERTENSION
     Route: 048
  3. LISINOPRIL/HCTZ [Concomitant]
     Indication: CARDIAC FAILURE CONGESTIVE
  4. FLUTICASONE [Concomitant]
     Indication: PRURITUS
     Route: 061
  5. MOBIC [Concomitant]
     Indication: PAIN
     Route: 048
  6. TYLENOL [Concomitant]
     Indication: PAIN
  7. SPIRIVA [Concomitant]
     Indication: CHRONIC OBSTRUCTIVE PULMONARY DISEASE
     Route: 055
  8. ASPIRIN [Concomitant]
     Indication: ANTICOAGULANT THERAPY
     Route: 048
  9. IBUPROFEN [Concomitant]
     Indication: INFLAMMATION
     Route: 048
  10. GABAPENTIN [Concomitant]
     Route: 048
  11. SERTRALINE [Concomitant]
     Route: 048
  12. SPIRONOLACTONE [Concomitant]
     Route: 048
  13. FUROSEMIDE [Concomitant]
     Route: 048

REACTIONS (2)
  - Nasal dryness [Not Recovered/Not Resolved]
  - Sinus congestion [Not Recovered/Not Resolved]
